FAERS Safety Report 6668631-6 (Version None)
Quarter: 2010Q2

REPORT INFORMATION
  Report Type: 
  Country: None (occurrence: None)
  Receive Date: 20100406
  Receipt Date: 20100401
  Transmission Date: 20101027
  Serious: Yes (Other)
  Sender: FDA-Public Use
  Company Number: PHHY2010BR20147

PATIENT
  Sex: Female

DRUGS (3)
  1. EXELON [Suspect]
     Dosage: 2 MG
  2. EXELON [Suspect]
     Dosage: 3 ML
  3. EXELON [Suspect]
     Dosage: 1.5 ML

REACTIONS (8)
  - BALANCE DISORDER [None]
  - DIZZINESS [None]
  - LABYRINTHITIS [None]
  - MOTOR DYSFUNCTION [None]
  - NAUSEA [None]
  - TACHYCARDIA [None]
  - TREMOR [None]
  - VOMITING [None]
